FAERS Safety Report 18880305 (Version 1)
Quarter: 2021Q1

REPORT INFORMATION
  Report Type: Report from Study
  Country: TR (occurrence: TR)
  Receive Date: 20210211
  Receipt Date: 20210211
  Transmission Date: 20210420
  Serious: Yes (Death)
  Sender: FDA-Public Use
  Company Number: TR-PFIZER INC-2021133585

PATIENT
  Age: 87 Year
  Sex: Female

DRUGS (1)
  1. GLASDEGIB [Suspect]
     Active Substance: GLASDEGIB

REACTIONS (1)
  - Death [Fatal]
